FAERS Safety Report 13850763 (Version 3)
Quarter: 2017Q4

REPORT INFORMATION
  Report Type: Report from Study
  Country: FR (occurrence: FR)
  Receive Date: 20170809
  Receipt Date: 20171205
  Transmission Date: 20180320
  Serious: Yes (Death, Hospitalization)
  Sender: FDA-Public Use
  Company Number: FR-CELGENEUS-FRA-20170704951

PATIENT
  Age: 74 Year
  Sex: Female
  Weight: 47 kg

DRUGS (2)
  1. AZACITIDINE. [Suspect]
     Active Substance: AZACITIDINE
     Indication: ACUTE MYELOID LEUKAEMIA
     Dosage: 75 MILLIGRAM/SQ. METER
     Route: 058
     Dates: start: 20170403, end: 20170607
  2. VADASTUXIMAB TALIRINE [Suspect]
     Active Substance: VADASTUXIMAB TALIRINE
     Indication: ACUTE MYELOID LEUKAEMIA
     Dosage: 10 MICROGRAM/KILOGRAM
     Route: 065
     Dates: start: 20170411, end: 20170607

REACTIONS (2)
  - Escherichia infection [Unknown]
  - Bronchopulmonary aspergillosis [Fatal]

NARRATIVE: CASE EVENT DATE: 20170630
